FAERS Safety Report 7038770-9 (Version None)
Quarter: 2010Q4

REPORT INFORMATION
  Report Type: 
  Country: None (occurrence: None)
  Receive Date: 20101012
  Receipt Date: 20101004
  Transmission Date: 20110411
  Serious: Yes (Hospitalization)
  Sender: FDA-Public Use
  Company Number: US-BIOGENIDEC-2010BI019155

PATIENT
  Age: 55 Year
  Sex: Male
  Weight: 115 kg

DRUGS (2)
  1. TYSABRI [Suspect]
     Indication: MULTIPLE SCLEROSIS
     Route: 042
     Dates: start: 20090929
  2. PROZAC [Concomitant]
     Indication: DEPRESSION

REACTIONS (10)
  - BACK PAIN [None]
  - BRONCHITIS [None]
  - DEPRESSED MOOD [None]
  - DRUG DOSE OMISSION [None]
  - DRUG INEFFECTIVE [None]
  - FATIGUE [None]
  - MENTAL STATUS CHANGES [None]
  - POOR VENOUS ACCESS [None]
  - SLEEP APNOEA SYNDROME [None]
  - UPPER RESPIRATORY TRACT INFECTION [None]
